FAERS Safety Report 9452340 (Version 1)
Quarter: 2013Q3

REPORT INFORMATION
  Report Type: Spontaneous
  Country: US (occurrence: None)
  Receive Date: 20130808
  Receipt Date: 20130808
  Transmission Date: 20140515
  Serious: Yes (Other)
  Sender: FDA-Public Use
  Company Number: None

PATIENT
  Sex: Female

DRUGS (1)
  1. TERBINAFINE HCL [Suspect]
     Indication: ONYCHOMYCOSIS
     Route: 048
     Dates: start: 20130107, end: 20130620

REACTIONS (5)
  - Muscle fatigue [None]
  - Fatigue [None]
  - Vision blurred [None]
  - Visual impairment [None]
  - Insomnia [None]
